FAERS Safety Report 15889225 (Version 1)
Quarter: 2019Q1

REPORT INFORMATION
  Report Type: Spontaneous
  Country: US (occurrence: US)
  Receive Date: 20190130
  Receipt Date: 20190130
  Transmission Date: 20190417
  Serious: No
  Sender: FDA-Public Use
  Company Number: US-ELI_LILLY_AND_COMPANY-US201901004569

PATIENT
  Sex: Female

DRUGS (1)
  1. EMGALITY [Suspect]
     Active Substance: GALCANEZUMAB-GNLM
     Indication: MIGRAINE
     Dosage: 1 DF, UNKNOWN
     Route: 065
     Dates: start: 20181226

REACTIONS (6)
  - Nausea [Unknown]
  - Headache [Unknown]
  - Photophobia [Unknown]
  - Visual impairment [Unknown]
  - Migraine [Unknown]
  - Stress [Unknown]
